FAERS Safety Report 11740101 (Version 2)
Quarter: 2015Q4

REPORT INFORMATION
  Report Type: Spontaneous
  Country: US (occurrence: US)
  Receive Date: 20151110
  Receipt Date: 20151120
  Transmission Date: 20160304
  Serious: No
  Sender: FDA-Public Use
  Company Number: US-ELI_LILLY_AND_COMPANY-US201206000267

PATIENT
  Age: 54 Year
  Sex: Female

DRUGS (2)
  1. FORTEO [Suspect]
     Active Substance: TERIPARATIDE
     Dosage: 20 UG, QD
     Route: 058
     Dates: end: 201207
  2. FORTEO [Suspect]
     Active Substance: TERIPARATIDE
     Indication: OSTEOPOROSIS
     Dosage: 20 UG, QD
     Route: 058
     Dates: start: 201205

REACTIONS (23)
  - Migraine [Unknown]
  - Ocular discomfort [Unknown]
  - Sleep disorder due to general medical condition, insomnia type [Unknown]
  - Injection site haemorrhage [Unknown]
  - Wrong technique in product usage process [Unknown]
  - Gait disturbance [Unknown]
  - Myalgia [Unknown]
  - Pain [Unknown]
  - Arthropathy [Unknown]
  - Ulcer [Unknown]
  - Malaise [Unknown]
  - Bone pain [Unknown]
  - Joint stiffness [Unknown]
  - Dehydration [Unknown]
  - Headache [Recovered/Resolved]
  - Dyspepsia [Not Recovered/Not Resolved]
  - Injection site swelling [Not Recovered/Not Resolved]
  - Arthralgia [Not Recovered/Not Resolved]
  - Neck pain [Unknown]
  - Injection site erythema [Not Recovered/Not Resolved]
  - Injection site pain [Unknown]
  - Vomiting [Unknown]
  - Injection site reaction [Unknown]

NARRATIVE: CASE EVENT DATE: 2012
